FAERS Safety Report 24949669 (Version 1)
Quarter: 2025Q1

REPORT INFORMATION
  Report Type: Spontaneous
  Country: US (occurrence: None)
  Receive Date: 20250209
  Receipt Date: 20250209
  Transmission Date: 20250409
  Serious: Yes (Disabling)
  Sender: FDA-CTU
  Company Number: None

PATIENT
  Age: 79 Year
  Sex: Female
  Weight: 76.5 kg

DRUGS (12)
  1. EZETIMIBE [Suspect]
     Active Substance: EZETIMIBE
     Indication: Blood cholesterol increased
     Dates: start: 20241007, end: 20241130
  2. METOPROLOL [Concomitant]
     Active Substance: METOPROLOL
  3. AMLODIPINE [Concomitant]
     Active Substance: AMLODIPINE BESYLATE
  4. METFORMIN [Concomitant]
     Active Substance: METFORMIN HYDROCHLORIDE
  5. LISINOPRIL [Concomitant]
     Active Substance: LISINOPRIL
  6. DEVICE [Concomitant]
     Active Substance: DEVICE
  7. GARLIC [Concomitant]
     Active Substance: GARLIC
  8. CINNAMON [Concomitant]
     Active Substance: CINNAMON
  9. COENZYME Q10 [Concomitant]
     Active Substance: DIETARY SUPPLEMENT\UBIDECARENONE
  10. CHOLECALCIFEROL [Concomitant]
     Active Substance: CHOLECALCIFEROL
  11. NM-6603 [Concomitant]
     Active Substance: NM-6603
  12. CRANBERRY [Concomitant]
     Active Substance: CRANBERRY

REACTIONS (3)
  - Diarrhoea [None]
  - Drug intolerance [None]
  - Impaired quality of life [None]

NARRATIVE: CASE EVENT DATE: 20241007
